FAERS Safety Report 16903706 (Version 1)
Quarter: 2019Q4

REPORT INFORMATION
  Report Type: Spontaneous
  Country: US (occurrence: US)
  Receive Date: 20191009
  Receipt Date: 20191009
  Transmission Date: 20200122
  Serious: Yes (Other)
  Sender: FDA-Public Use
  Company Number: None

PATIENT
  Age: 21 Year
  Sex: Female
  Weight: 73.35 kg

DRUGS (2)
  1. ADDYI [Suspect]
     Active Substance: FLIBANSERIN
     Indication: LIBIDO DECREASED
     Dates: start: 20191005
  2. ADDYI [Suspect]
     Active Substance: FLIBANSERIN
     Indication: LOSS OF LIBIDO
     Dates: start: 20191005

REACTIONS (2)
  - Dysstasia [None]
  - Hypotension [None]

NARRATIVE: CASE EVENT DATE: 20191009
